FAERS Safety Report 5764956-7 (Version None)
Quarter: 2008Q2

REPORT INFORMATION
  Report Type: 
  Country: None (occurrence: None)
  Receive Date: 20080611
  Receipt Date: 20080527
  Transmission Date: 20081010
  Serious: Yes (Other)
  Sender: FDA-Public Use
  Company Number: B0523338A

PATIENT

DRUGS (4)
  1. MELPHALAN [Suspect]
     Indication: BONE MARROW TRANSPLANT
     Route: 065
  2. CARMUSTINE [Suspect]
     Indication: BONE MARROW TRANSPLANT
     Route: 065
  3. ETOPOSIDE [Suspect]
     Indication: BONE MARROW TRANSPLANT
     Route: 065
  4. CYTARABINE [Suspect]
     Indication: BONE MARROW TRANSPLANT
     Route: 065

REACTIONS (2)
  - MYELODYSPLASTIC SYNDROME [None]
  - REFRACTORY CYTOPENIA WITH MULTILINEAGE DYSPLASIA [None]
